FAERS Safety Report 7809168-8 (Version None)
Quarter: 2011Q4

REPORT INFORMATION
  Report Type: 
  Country: None (occurrence: None)
  Receive Date: 20111012
  Receipt Date: 20111006
  Transmission Date: 20120403
  Serious: Yes (Hospitalization)
  Sender: FDA-Public Use
  Company Number: US-GENZYME-CAMP-1000113

PATIENT
  Sex: Female
  Weight: 94.785 kg

DRUGS (4)
  1. ALEMTUZUMAB [Suspect]
     Indication: MULTIPLE SCLEROSIS
     Dosage: 24 MG, QDX5
     Route: 042
     Dates: start: 20080225, end: 20080229
  2. LEXAPRO [Concomitant]
     Indication: PAIN
     Dosage: 15 MG, QD
     Route: 048
     Dates: start: 20080218, end: 20080821
  3. RELPAX [Concomitant]
     Indication: PRODUCT USED FOR UNKNOWN INDICATION
     Dosage: UNK
     Dates: start: 20080512, end: 20080821
  4. TOPAMAX [Concomitant]
     Indication: PRODUCT USED FOR UNKNOWN INDICATION
     Dosage: 150 MG, QD
     Route: 048
     Dates: start: 20070119, end: 20080821

REACTIONS (3)
  - HERPES ZOSTER [None]
  - POST HERPETIC NEURALGIA [None]
  - THROMBOCYTOPENIA [None]
